FAERS Safety Report 10428919 (Version 2)
Quarter: 2014Q3

REPORT INFORMATION
  Report Type: Spontaneous
  Country: DE (occurrence: DE)
  Receive Date: 20140904
  Receipt Date: 20140923
  Transmission Date: 20150326
  Serious: Yes (Congenital Anomaly, Other)
  Sender: FDA-Public Use
  Company Number: DE-UCBSA-2014010596

PATIENT

DRUGS (2)
  1. VIMPAT [Suspect]
     Active Substance: LACOSAMIDE
     Dosage: UNK
     Route: 050
  2. KEPPRA [Suspect]
     Active Substance: LEVETIRACETAM
     Dosage: 3000 MG PER DAY
     Route: 050

REACTIONS (4)
  - Premature baby [Unknown]
  - Congenital laryngeal stridor [Unknown]
  - Exposure via father [Unknown]
  - Cardiac septal defect [Unknown]

NARRATIVE: CASE EVENT DATE: 201403
